FAERS Safety Report 16735897 (Version 1)
Quarter: 2019Q3

REPORT INFORMATION
  Report Type: Spontaneous
  Country: DE (occurrence: DE)
  Receive Date: 20190823
  Receipt Date: 20190823
  Transmission Date: 20191005
  Serious: Yes (Hospitalization)
  Sender: FDA-Public Use
  Company Number: ICHICSR-EVHUMAN-20190812090017_AHXKPH

PATIENT
  Age: 53 Month
  Sex: Female

DRUGS (7)
  1. LIORESAL [Suspect]
     Active Substance: BACLOFEN
     Indication: PRODUCT USED FOR UNKNOWN INDICATION
     Dosage: 20 MG, QD
     Route: 065
  2. OMEP [OMEPRAZOLE SODIUM] [Concomitant]
     Indication: PRODUCT USED FOR UNKNOWN INDICATION
     Dosage: UNK
     Route: 065
  3. SANDIMMUN [Suspect]
     Active Substance: CYCLOSPORINE
     Indication: LIVER TRANSPLANT
     Dosage: UNK
     Route: 048
  4. ENVARSUS XR [Suspect]
     Active Substance: TACROLIMUS
     Indication: PRODUCT USED FOR UNKNOWN INDICATION
     Dosage: UNK
     Route: 065
  5. LIORESAL [Suspect]
     Active Substance: BACLOFEN
     Dosage: 7.5 MG, QD
     Route: 065
     Dates: start: 201904
  6. SANDIMMUN OPTORAL [Suspect]
     Active Substance: CYCLOSPORINE
     Indication: LIVER TRANSPLANT
     Dosage: UNK
     Route: 048
  7. SANDIMMUN OPTORAL [Suspect]
     Active Substance: CYCLOSPORINE
     Dosage: 30 MG
     Route: 048
     Dates: start: 201904

REACTIONS (10)
  - Abnormal faeces [Unknown]
  - Musculoskeletal stiffness [Unknown]
  - Skin disorder [Unknown]
  - Fatigue [Recovered/Resolved]
  - Drug ineffective [Unknown]
  - Hepatic failure [Unknown]
  - Muscle spasticity [Recovering/Resolving]
  - Hypoglycaemia [Unknown]
  - Status epilepticus [Unknown]
  - Off label use [None]
